FAERS Safety Report 6608167-1 (Version None)
Quarter: 2010Q1

REPORT INFORMATION
  Report Type: 
  Country: None (occurrence: None)
  Receive Date: 20100212
  Receipt Date: 20091019
  Transmission Date: 20100710
  Serious: No
  Sender: FDA-Public Use
  Company Number: 1000009535

PATIENT
  Age: 70 Year
  Sex: Male

DRUGS (15)
  1. SAVELLA [Suspect]
     Indication: NEUROPATHY PERIPHERAL
     Dosage: 12.5 MG (12.5 MG, 1 IN 1 D), ORAL; SEE IMAGE
     Route: 048
     Dates: start: 20091008, end: 20091008
  2. SAVELLA [Suspect]
     Indication: NEUROPATHY PERIPHERAL
     Dosage: 12.5 MG (12.5 MG, 1 IN 1 D), ORAL; SEE IMAGE
     Route: 048
     Dates: start: 20091009, end: 20091010
  3. SAVELLA [Suspect]
     Indication: NEUROPATHY PERIPHERAL
     Dosage: 12.5 MG (12.5 MG, 1 IN 1 D), ORAL; SEE IMAGE
     Route: 048
     Dates: start: 20091011, end: 20091014
  4. SAVELLA [Suspect]
     Indication: NEUROPATHY PERIPHERAL
     Dosage: 100 MG (50 MG, 2 IN 1 D), ORAL; 50 MG (50 MG, 1 IN 1 D), ORAL
     Route: 048
     Dates: start: 20091015, end: 20091001
  5. SAVELLA [Suspect]
     Indication: NEUROPATHY PERIPHERAL
     Dosage: 100 MG (50 MG, 2 IN 1 D), ORAL; 50 MG (50 MG, 1 IN 1 D), ORAL
     Route: 048
     Dates: start: 20091001
  6. GABAPENTIN [Concomitant]
  7. LYRICA [Concomitant]
  8. MINOCYCLINE HCL [Concomitant]
  9. LUNESTA [Concomitant]
  10. TRAZODONE HCL [Concomitant]
  11. FLOMAX [Concomitant]
  12. ALLOPURINOL [Concomitant]
  13. INDOCIN [Concomitant]
  14. ONDANSETRON [Concomitant]
  15. XANAX [Concomitant]

REACTIONS (1)
  - TINNITUS [None]
